FAERS Safety Report 9272587 (Version 2)
Quarter: 2013Q2

REPORT INFORMATION
  Report Type: Spontaneous
  Country: ES (occurrence: ES)
  Receive Date: 20130506
  Receipt Date: 20130522
  Transmission Date: 20140414
  Serious: Yes (Death, Hospitalization)
  Sender: FDA-Public Use
  Company Number: ES-GLAXOSMITHKLINE-B0889143A

PATIENT
  Age: 30 Year
  Sex: Female

DRUGS (1)
  1. VOTRIENT [Suspect]
     Indication: SYNOVIAL SARCOMA
     Route: 048
     Dates: end: 201304

REACTIONS (5)
  - Malignant neoplasm progression [Fatal]
  - Synovial sarcoma [Fatal]
  - Lung infection [Unknown]
  - Metastases to lung [Unknown]
  - Haemoptysis [Unknown]
